FAERS Safety Report 9050622 (Version 1)
Quarter: 2013Q1

REPORT INFORMATION
  Report Type: Spontaneous
  Country: US (occurrence: US)
  Receive Date: 20130205
  Receipt Date: 20130205
  Transmission Date: 20140127
  Serious: Yes (Other)
  Sender: FDA-Public Use
  Company Number: US-PFIZER INC-2012334153

PATIENT
  Sex: Male

DRUGS (2)
  1. TENORMIN [Suspect]
     Indication: TACHYCARDIA
     Dosage: 100 MG, 2X/DAY
     Route: 048
  2. TENORMIN [Suspect]
     Dosage: HEART RACES DURING THE DAY, SPLIT 100 MG AND THE REMAINED AT HS
     Route: 048

REACTIONS (4)
  - Transient ischaemic attack [Unknown]
  - Drug dose omission [Unknown]
  - Anxiety [Unknown]
  - Intentional drug misuse [Unknown]
